FAERS Safety Report 15155778 (Version 1)
Quarter: 2018Q3

REPORT INFORMATION
  Report Type: Spontaneous
  Country: ES (occurrence: ES)
  Receive Date: 20180717
  Receipt Date: 20180717
  Transmission Date: 20181010
  Serious: Yes (Life-Threatening, Other)
  Sender: FDA-Public Use
  Company Number: ES-US WORLDMEDS, LLC-STA_00018922

PATIENT
  Age: 80 Year
  Sex: Female

DRUGS (5)
  1. LEVODOPA RETARD [Concomitant]
     Indication: PARKINSON^S DISEASE
     Route: 048
     Dates: start: 2003
  2. PRAMIPEXOL [Concomitant]
     Active Substance: PRAMIPEXOLE
     Indication: PARKINSON^S DISEASE
     Route: 048
     Dates: start: 20110225
  3. APOMORPHINE HYDROCHLORIDE [Suspect]
     Active Substance: APOMORPHINE HYDROCHLORIDE
     Indication: PARKINSON^S DISEASE
     Dosage: 1 ML/H, 16 HOURS/DAY
     Route: 058
     Dates: start: 20140716, end: 20161214
  4. LEVODOPA/CARBOIDOPA S [Concomitant]
     Indication: PARKINSON^S DISEASE
     Route: 048
     Dates: start: 2003
  5. SAFINAMIDE [Concomitant]
     Active Substance: SAFINAMIDE
     Indication: PARKINSON^S DISEASE
     Route: 048
     Dates: start: 20160629

REACTIONS (2)
  - Coombs positive haemolytic anaemia [Recovered/Resolved]
  - Haemolysis [Recovering/Resolving]

NARRATIVE: CASE EVENT DATE: 201604
